FAERS Safety Report 4337178-4 (Version None)
Quarter: 2004Q2

REPORT INFORMATION
  Report Type: 
  Country: None (occurrence: None)
  Receive Date: 20040408
  Receipt Date: 20040408
  Transmission Date: 20050107
  Serious: Yes (Hospitalization)
  Sender: FDA-Public Use
  Company Number: HQWYE213829MAR04

PATIENT
  Age: 36 Year
  Sex: Male

DRUGS (5)
  1. AVLOCARDYL (PROPRANOLOL HYDROCHLORIDE, TABLET) [Suspect]
     Dosage: 40 MG TABLET (DOSE AND FREQUENCY NOT SPECIFIED) ORAL
     Route: 048
  2. XANAX (ALPRASOLAM) [Concomitant]
  3. TOPIRAMATE [Concomitant]
  4. TRILEPTAL [Concomitant]
  5. STABLONE (TIANEPTINE) [Concomitant]

REACTIONS (3)
  - AZOOSPERMIA [None]
  - SPERMATOZOA PROGRESSIVE MOTILITY DECREASED [None]
  - TERATOSPERMIA [None]
